FAERS Safety Report 4947845-7 (Version None)
Quarter: 2006Q1

REPORT INFORMATION
  Report Type: 
  Country: None (occurrence: None)
  Receive Date: 20060317
  Receipt Date: 20060317
  Transmission Date: 20060701
  Serious: Yes (Hospitalization)
  Sender: FDA-Public Use
  Company Number: None

PATIENT
  Sex: Male
  Weight: 107.9561 kg

DRUGS (1)
  1. LITHIUM CARBONATE [Suspect]
     Indication: BIPOLAR DISORDER
     Dosage: 300MG  2 TABLETS BID   PO
     Route: 048
     Dates: start: 20051106, end: 20051217

REACTIONS (2)
  - MENTAL STATUS CHANGES [None]
  - RENAL FAILURE ACUTE [None]
